FAERS Safety Report 10056957 (Version 1)
Quarter: 2014Q2

REPORT INFORMATION
  Report Type: Spontaneous
  Country: IT (occurrence: IT)
  Receive Date: 20140403
  Receipt Date: 20140403
  Transmission Date: 20141212
  Serious: Yes (Other)
  Sender: FDA-Public Use
  Company Number: IT-BANPHARM-20142465

PATIENT
  Sex: 0

DRUGS (1)
  1. ZONISAMIDE UNKNOWN PRODUCT [Suspect]
     Indication: PARTIAL SEIZURES

REACTIONS (1)
  - Foot fracture [Unknown]
